FAERS Safety Report 4726820-1 (Version None)
Quarter: 2005Q3

REPORT INFORMATION
  Report Type: 
  Country: None (occurrence: None)
  Receive Date: 20050725
  Receipt Date: 20050209
  Transmission Date: 20060218
  Serious: No
  Sender: FDA-Public Use
  Company Number: USA050290417

PATIENT
  Sex: Male

DRUGS (1)
  1. STRATTERA [Suspect]
     Dosage: 100 MG/1 DAY

REACTIONS (4)
  - DECREASED APPETITE [None]
  - INSOMNIA [None]
  - SEXUAL DYSFUNCTION [None]
  - WEIGHT DECREASED [None]
